FAERS Safety Report 9292597 (Version 2)
Quarter: 2014Q3

REPORT INFORMATION
  Report Type: Spontaneous
  Country: US (occurrence: US)
  Receive Date: 20130516
  Receipt Date: 20140826
  Transmission Date: 20150326
  Serious: No
  Sender: FDA-Public Use
  Company Number: US-PFIZER INC-2013151100

PATIENT
  Age: 68 Year
  Sex: Female

DRUGS (2)
  1. LYRICA [Suspect]
     Active Substance: PREGABALIN
     Dosage: UNK
     Dates: start: 2014, end: 20140818
  2. LYRICA [Suspect]
     Active Substance: PREGABALIN
     Indication: FIBROMYALGIA
     Dosage: UNK
     Dates: start: 2004, end: 2006

REACTIONS (4)
  - Weight increased [Unknown]
  - Weight increased [Unknown]
  - Fibromyalgia [Unknown]
  - Depression [Unknown]

NARRATIVE: CASE EVENT DATE: 2014
